FAERS Safety Report 13079044 (Version 3)
Quarter: 2018Q2

REPORT INFORMATION
  Report Type: Spontaneous
  Country: FR (occurrence: FR)
  Receive Date: 20170102
  Receipt Date: 20180503
  Transmission Date: 20180711
  Serious: Yes (Hospitalization)
  Sender: FDA-Public Use
  Company Number: FR-AMGEN-FRASP2016185476

PATIENT
  Age: 67 Year
  Sex: Female
  Weight: 104 kg

DRUGS (1)
  1. ENBREL [Suspect]
     Active Substance: ETANERCEPT
     Indication: PSORIASIS
     Dosage: 1 DF, CYCLICAL
     Route: 058
     Dates: start: 2011, end: 201611

REACTIONS (2)
  - Marginal zone lymphoma [Not Recovered/Not Resolved]
  - Lymphocytosis [Unknown]

NARRATIVE: CASE EVENT DATE: 2015
